FAERS Safety Report 14150595 (Version 1)
Quarter: 2017Q4

REPORT INFORMATION
  Report Type: Other
  Country: GB (occurrence: JP)
  Receive Date: 20171101
  Receipt Date: 20171101
  Transmission Date: 20180321
  Serious: Yes (Life-Threatening, Hospitalization, Other)
  Sender: FDA-Public Use
  Company Number: JP-INTERNATIONAL MEDICATION SYSTEMS, LIMITED-2032998

PATIENT
  Age: 41 Year
  Sex: Female

DRUGS (1)
  1. EPINEPHRINE. [Suspect]
     Active Substance: EPINEPHRINE
     Route: 058

REACTIONS (2)
  - Overdose [Unknown]
  - Stress cardiomyopathy [Recovering/Resolving]
